FAERS Safety Report 6454106-6 (Version None)
Quarter: 2009Q4

REPORT INFORMATION
  Report Type: 
  Country: None (occurrence: None)
  Receive Date: 20091124
  Receipt Date: 20091117
  Transmission Date: 20100525
  Serious: Yes (Life-Threatening)
  Sender: FDA-Public Use
  Company Number: US-MERCK-0911USA03391

PATIENT
  Age: 44 Year
  Sex: Female

DRUGS (3)
  1. INVANZ [Suspect]
     Indication: BRAIN ABSCESS
     Route: 042
  2. VANCOMYCIN [Concomitant]
     Indication: BRAIN ABSCESS
     Route: 042
  3. AZITHROMYCIN [Concomitant]
     Route: 065

REACTIONS (1)
  - DRUG RASH WITH EOSINOPHILIA AND SYSTEMIC SYMPTOMS [None]
